FAERS Safety Report 23765395 (Version 2)
Quarter: 2024Q2

REPORT INFORMATION
  Report Type: Spontaneous
  Country: US (occurrence: US)
  Receive Date: 20240420
  Receipt Date: 20240606
  Transmission Date: 20240716
  Serious: Yes (Other)
  Sender: FDA-Public Use
  Company Number: US-AMGEN-USASP2024073985

PATIENT
  Sex: Female

DRUGS (3)
  1. INFLIXIMAB [Suspect]
     Active Substance: INFLIXIMAB
     Indication: Inflammatory bowel disease
     Dosage: UNK
     Route: 065
  2. INFLIXIMAB [Suspect]
     Active Substance: INFLIXIMAB
     Indication: Colitis ulcerative
  3. INFLIXIMAB [Suspect]
     Active Substance: INFLIXIMAB
     Indication: Crohn^s disease

REACTIONS (10)
  - Abortion spontaneous [Unknown]
  - Premature separation of placenta [Unknown]
  - Placenta praevia [Unknown]
  - Postpartum haemorrhage [Unknown]
  - Complication of pregnancy [Unknown]
  - Premature delivery [Unknown]
  - Small for dates baby [Unknown]
  - Adverse event [Unknown]
  - Pre-eclampsia [Unknown]
  - Haemorrhage [Unknown]
